FAERS Safety Report 8866187 (Version 2)
Quarter: 2012Q4

REPORT INFORMATION
  Report Type: 
  Country: ES (occurrence: ES)
  Receive Date: 20121025
  Receipt Date: 20121126
  Transmission Date: 20130627
  Serious: Yes (Hospitalization)
  Sender: FDA-Public Use
  Company Number: PHHY2012ES094066

PATIENT
  Sex: Male

DRUGS (4)
  1. ONBREZ [Suspect]
     Indication: CHRONIC OBSTRUCTIVE PULMONARY DISEASE
     Dosage: 300 ug, QD
     Dates: start: 20120917, end: 20121017
  2. VALSARTAN [Concomitant]
     Dosage: 160 mg, UNK
  3. ATROVENT [Concomitant]
  4. ADIRO [Concomitant]

REACTIONS (3)
  - Cardiac failure [Recovering/Resolving]
  - Respiratory failure [Recovering/Resolving]
  - Oedema peripheral [Recovering/Resolving]
